FAERS Safety Report 7974805-4 (Version None)
Quarter: 2011Q4

REPORT INFORMATION
  Report Type: 
  Country: None (occurrence: None)
  Receive Date: 20111213
  Receipt Date: 20111206
  Transmission Date: 20120403
  Serious: Yes (Other)
  Sender: FDA-Public Use
  Company Number: US-BAYER-2011-118400

PATIENT
  Sex: Male

DRUGS (1)
  1. AVELOX [Suspect]
     Indication: BRONCHITIS
     Dosage: 40 MG, UNK
     Route: 048
     Dates: start: 20111101

REACTIONS (8)
  - INSOMNIA [None]
  - ARTHRALGIA [None]
  - TREMOR [None]
  - DIZZINESS [None]
  - PSYCHOTIC DISORDER [None]
  - PALPITATIONS [None]
  - PANIC ATTACK [None]
  - ANXIETY [None]
